FAERS Safety Report 16539966 (Version 1)
Quarter: 2019Q3

REPORT INFORMATION
  Report Type: Spontaneous
  Country: US (occurrence: US)
  Receive Date: 20190706
  Receipt Date: 20190706
  Transmission Date: 20191004
  Serious: No
  Sender: FDA-Public Use
  Company Number: None

PATIENT
  Age: 51 Year
  Sex: Female
  Weight: 55.8 kg

DRUGS (1)
  1. PURALUBE [Suspect]
     Active Substance: MINERAL OIL\PETROLATUM
     Indication: DRY EYE
     Dosage: ?          OTHER FREQUENCY:6-8 TIMES/DAY;?
     Route: 047
     Dates: start: 20190611, end: 20190616

REACTIONS (5)
  - Ocular hyperaemia [None]
  - Scleral disorder [None]
  - Eye infection [None]
  - Blister [None]
  - Suspected product contamination [None]

NARRATIVE: CASE EVENT DATE: 20190616
